FAERS Safety Report 19954767 (Version 2)
Quarter: 2021Q4

REPORT INFORMATION
  Report Type: Spontaneous
  Country: JP (occurrence: JP)
  Receive Date: 20211014
  Receipt Date: 20211027
  Transmission Date: 20220303
  Serious: Yes (Hospitalization, Other)
  Sender: FDA-Public Use
  Company Number: JP-JNJFOC-20211007015

PATIENT
  Age: 25 Year
  Sex: Female

DRUGS (12)
  1. TRACLEER [Suspect]
     Active Substance: BOSENTAN
     Indication: Pulmonary arterial hypertension
     Route: 048
  2. SPIRONOLACTONE [Concomitant]
     Active Substance: SPIRONOLACTONE
     Route: 048
  3. TORSEMIDE [Concomitant]
     Active Substance: TORSEMIDE
     Route: 048
  4. TOLVAPTAN [Concomitant]
     Active Substance: TOLVAPTAN
     Route: 048
  5. PIMOBENDAN [Concomitant]
     Active Substance: PIMOBENDAN
     Route: 048
  6. FEBUXOSTAT [Concomitant]
     Active Substance: FEBUXOSTAT
     Route: 048
  7. AMIODARONE HYDROCHLORIDE [Concomitant]
     Active Substance: AMIODARONE HYDROCHLORIDE
     Route: 065
  8. LEVOTHYROXINE SODIUM [Concomitant]
     Active Substance: LEVOTHYROXINE SODIUM
     Route: 048
  9. TADALAFIL [Concomitant]
     Active Substance: TADALAFIL
     Route: 048
  10. SELEXIPAG [Concomitant]
     Active Substance: SELEXIPAG
     Route: 048
  11. WARFARIN POTASSIUM [Concomitant]
     Active Substance: WARFARIN POTASSIUM
     Route: 048
  12. LASIX [Concomitant]
     Active Substance: FUROSEMIDE
     Route: 048

REACTIONS (6)
  - Right-to-left cardiac shunt [Recovered/Resolved]
  - Ovarian haemorrhage [Unknown]
  - Cerebral infarction [Recovered/Resolved]
  - Pulmonary hypertensive crisis [Recovered/Resolved]
  - Cardiac failure [Unknown]
  - Renal impairment [Unknown]
